FAERS Safety Report 6219775-4 (Version None)
Quarter: 2009Q2

REPORT INFORMATION
  Report Type: 
  Country: None (occurrence: None)
  Receive Date: 20090609
  Receipt Date: 20090601
  Transmission Date: 20091009
  Serious: Yes (Death, Hospitalization, Disabling)
  Sender: FDA-Public Use
  Company Number: B0446579A

PATIENT
  Sex: Female

DRUGS (8)
  1. FLOLAN [Suspect]
     Indication: PULMONARY HYPERTENSION
     Route: 042
     Dates: start: 20020416
  2. FUROSEMIDE [Concomitant]
     Route: 048
  3. SPIRONOLACTONE [Concomitant]
     Route: 048
  4. DIGOXIN [Concomitant]
     Route: 048
  5. CORETEC [Concomitant]
     Route: 042
  6. MILLISROL (JAPAN) [Concomitant]
     Route: 042
  7. TRACLEER [Concomitant]
     Route: 048
  8. POLYGAM S/D [Concomitant]
     Route: 030

REACTIONS (9)
  - PANCYTOPENIA [None]
  - PLATELET COUNT DECREASED [None]
  - PNEUMONIA [None]
  - PNEUMONIA VIRAL [None]
  - PULMONARY HYPERTENSION [None]
  - PYREXIA [None]
  - RESPIRATORY FAILURE [None]
  - SEPSIS [None]
  - SUBCUTANEOUS ABSCESS [None]
